FAERS Safety Report 22234397 (Version 1)
Quarter: 2023Q2

REPORT INFORMATION
  Report Type: Spontaneous
  Country: US (occurrence: None)
  Receive Date: 20230420
  Receipt Date: 20230420
  Transmission Date: 20230722
  Serious: No
  Sender: FDA-Public Use
  Company Number: US-ROCHE-3206795

PATIENT
  Sex: Male

DRUGS (1)
  1. ESBRIET [Suspect]
     Active Substance: PIRFENIDONE
     Indication: Interstitial lung disease
     Route: 048
     Dates: start: 202109

REACTIONS (5)
  - Muscular weakness [Unknown]
  - Arthralgia [Unknown]
  - Groin pain [Unknown]
  - Back pain [Unknown]
  - Pain in extremity [Unknown]
